FAERS Safety Report 7693190-9 (Version None)
Quarter: 2011Q3

REPORT INFORMATION
  Report Type: 
  Country: None (occurrence: None)
  Receive Date: 20110819
  Receipt Date: 20110811
  Transmission Date: 20111222
  Serious: Yes (Life-Threatening, Hospitalization)
  Sender: FDA-Public Use
  Company Number: US-BAYER-201028569NA

PATIENT
  Age: 16 Year
  Sex: Female
  Weight: 66 kg

DRUGS (4)
  1. MINOCYCLINE HCL [Concomitant]
  2. ACETAMINOPHEN AND HYDROCODONE BITARTRATE [Concomitant]
     Dosage: UNK
     Dates: start: 20071026
  3. SALICYLIC ACID [Concomitant]
     Dosage: UNK
     Dates: start: 20071001
  4. YAZ [Suspect]
     Indication: ACNE
     Route: 048
     Dates: start: 20070101

REACTIONS (3)
  - PELVIC VENOUS THROMBOSIS [None]
  - DEEP VEIN THROMBOSIS [None]
  - PULMONARY EMBOLISM [None]
